FAERS Safety Report 7719328-2 (Version None)
Quarter: 2011Q3

REPORT INFORMATION
  Report Type: 
  Country: None (occurrence: None)
  Receive Date: 20110830
  Receipt Date: 20110818
  Transmission Date: 20111222
  Serious: Yes (Hospitalization)
  Sender: FDA-Public Use
  Company Number: US-JNJFOC-20110611373

PATIENT
  Sex: Male
  Weight: 60.5 kg

DRUGS (4)
  1. REMICADE [Suspect]
     Indication: CROHN'S DISEASE
     Route: 042
     Dates: start: 20100917
  2. REMICADE [Suspect]
     Route: 042
     Dates: start: 20110425
  3. PREDNISONE [Suspect]
     Indication: PRODUCT USED FOR UNKNOWN INDICATION
  4. MESALAMINE [Concomitant]

REACTIONS (2)
  - GASTROENTERITIS VIRAL [None]
  - CROHN'S DISEASE [None]
